FAERS Safety Report 4577496-8 (Version None)
Quarter: 2005Q2

REPORT INFORMATION
  Report Type: 
  Country: None (occurrence: None)
  Receive Date: 20050208
  Receipt Date: 20050126
  Transmission Date: 20051028
  Serious: Yes (Disabling)
  Sender: FDA-Public Use
  Company Number: A201008

PATIENT
  Age: 53 Year
  Sex: Male
  Weight: 65 kg

DRUGS (4)
  1. SULPERAZON (SULBACTAM, CEFOPERAZONE) [Suspect]
     Indication: ENTERITIS INFECTIOUS
     Dosage: 2 GRAM (1 GRAM, 2 IN 1 D), INTRAVENOUS
     Route: 042
     Dates: start: 20000921, end: 20000930
  2. CEFMETAZOLE SODIUM (CEFMETAZOLE SODIUM) [Suspect]
     Indication: INFECTION PROPHYLAXIS
     Dosage: 2 GRAM (1 GRAM, 2 IN 1 D), INTRAVENOUS
     Route: 042
     Dates: start: 20001109, end: 20001118
  3. CEFOTIAM HYDROCHLORIDE [Concomitant]
  4. FLOMOXEF SODIUM (FLOMOXEF SODIUM) [Concomitant]

REACTIONS (9)
  - BLOOD CHOLESTEROL INCREASED [None]
  - COLON CANCER [None]
  - GLOMERULONEPHRITIS PROLIFERATIVE [None]
  - HENOCH-SCHONLEIN PURPURA [None]
  - HYPOCHROMIC ANAEMIA [None]
  - LYMPHOCYTE STIMULATION TEST POSITIVE [None]
  - NEPHROTIC SYNDROME [None]
  - POST PROCEDURAL COMPLICATION [None]
  - PURPURA [None]
